FAERS Safety Report 19836823 (Version 2)
Quarter: 2021Q3

REPORT INFORMATION
  Report Type: Report from Study
  Country: IT (occurrence: IT)
  Receive Date: 20210915
  Receipt Date: 20210920
  Transmission Date: 20211014
  Serious: Yes (Hospitalization)
  Sender: FDA-Public Use
  Company Number: IT-MYLANLABS-2021M1061766

PATIENT
  Age: 89 Year
  Sex: Male

DRUGS (9)
  1. DIUREMID                           /01036501/ [Interacting]
     Active Substance: TORSEMIDE
     Indication: PRODUCT USED FOR UNKNOWN INDICATION
     Dosage: 5 MILLIGRAM
     Route: 048
     Dates: start: 20210101, end: 20210404
  2. LANSOPRAZOLE. [Concomitant]
     Active Substance: LANSOPRAZOLE
     Dosage: 15 MILLIGRAM
  3. LOSARTAN ACTAVIS [Concomitant]
     Active Substance: LOSARTAN
     Dosage: 50 MILLIGRAM
  4. IVABRADINE                         /05513502/ [Concomitant]
     Dosage: 5 MILLIGRAM
  5. ATORVASTATIN [Concomitant]
     Active Substance: ATORVASTATIN
     Dosage: 80 MILLIGRAM
  6. ACETYLSALICYLIC ACID [Concomitant]
     Active Substance: ASPIRIN
     Dosage: 1 DOSAGE FORM
  7. DUTASTERIDE ZENTIVA [Concomitant]
     Dosage: 1 DOSAGE FORM
  8. METFORMIN [Suspect]
     Active Substance: METFORMIN HYDROCHLORIDE
     Indication: DIABETES MELLITUS
     Dosage: 850 MILLIGRAM, QD
     Route: 048
     Dates: start: 20210101, end: 20210404
  9. ACARPHAGE [Concomitant]
     Active Substance: ACARBOSE
     Dosage: 50 MILLIGRAM

REACTIONS (2)
  - Drug interaction [Not Recovered/Not Resolved]
  - Metabolic acidosis [Not Recovered/Not Resolved]

NARRATIVE: CASE EVENT DATE: 20210404
